FAERS Safety Report 7724890-X (Version None)
Quarter: 2011Q3

REPORT INFORMATION
  Report Type: 
  Country: None (occurrence: None)
  Receive Date: 20110901
  Receipt Date: 20110819
  Transmission Date: 20111222
  Serious: Yes (Death)
  Sender: FDA-Public Use
  Company Number: GB-MYLANLABS-2011S1017636

PATIENT
  Age: 4 Year
  Sex: Female

DRUGS (9)
  1. VALPROATE SODIUM [Suspect]
     Indication: ATTENTION DEFICIT/HYPERACTIVITY DISORDER
  2. VALPROATE SODIUM [Suspect]
     Indication: BIPOLAR DISORDER
  3. QUETIAPINE [Concomitant]
     Indication: ATTENTION DEFICIT/HYPERACTIVITY DISORDER
  4. CLONIDINE [Suspect]
     Indication: PSYCHOMOTOR HYPERACTIVITY
  5. CLONIDINE [Suspect]
     Indication: BIPOLAR DISORDER
  6. QUETIAPINE [Concomitant]
     Indication: BIPOLAR DISORDER
  7. QUETIAPINE [Concomitant]
     Indication: PSYCHOMOTOR HYPERACTIVITY
  8. VALPROATE SODIUM [Suspect]
     Indication: PSYCHOMOTOR HYPERACTIVITY
  9. CLONIDINE [Suspect]
     Indication: ATTENTION DEFICIT/HYPERACTIVITY DISORDER

REACTIONS (1)
  - DEATH [None]
